FAERS Safety Report 7316142-7 (Version None)
Quarter: 2011Q1

REPORT INFORMATION
  Report Type: 
  Country: None (occurrence: None)
  Receive Date: 20110225
  Receipt Date: 20110221
  Transmission Date: 20110831
  Serious: Yes (Other)
  Sender: FDA-Public Use
  Company Number: US-ROXANE LABORATORIES, INC.-2011-RO-00204RO

PATIENT
  Age: 43 Year
  Sex: Male

DRUGS (4)
  1. BEVACIZUMAB [Suspect]
     Indication: ANAPLASTIC ASTROCYTOMA
  2. DEXAMETHASONE [Suspect]
  3. TEMOZOLOMIDE [Suspect]
     Indication: ANAPLASTIC ASTROCYTOMA
     Route: 048
  4. ETOPOSIDE [Suspect]
     Indication: ANAPLASTIC ASTROCYTOMA

REACTIONS (3)
  - DRUG DEPENDENCE [None]
  - SKIN ULCER [None]
  - TOXICITY TO VARIOUS AGENTS [None]
